FAERS Safety Report 7900918-9 (Version None)
Quarter: 2011Q4

REPORT INFORMATION
  Report Type: 
  Country: None (occurrence: None)
  Receive Date: 20111104
  Receipt Date: 20111021
  Transmission Date: 20120403
  Serious: Yes (Hospitalization, Other)
  Sender: FDA-Public Use
  Company Number: INT_00033_2011

PATIENT
  Age: 43 Year
  Sex: Female

DRUGS (1)
  1. CEFTRIAXONE [Suspect]
     Indication: UPPER RESPIRATORY TRACT INFECTION
     Dosage: (1 G)

REACTIONS (14)
  - COMA [None]
  - EOSINOPHIL PERCENTAGE INCREASED [None]
  - WHITE BLOOD CELL COUNT INCREASED [None]
  - ALANINE AMINOTRANSFERASE INCREASED [None]
  - FIBRIN D DIMER INCREASED [None]
  - HAEMOLYTIC ANAEMIA [None]
  - MELAENA [None]
  - INTESTINAL OBSTRUCTION [None]
  - BACK PAIN [None]
  - DECREASED APPETITE [None]
  - DIZZINESS [None]
  - FATIGUE [None]
  - BLOOD POTASSIUM DECREASED [None]
  - PORTAL VEIN THROMBOSIS [None]
